FAERS Safety Report 9147642 (Version 6)
Quarter: 2017Q2

REPORT INFORMATION
  Report Type: Report from Study
  Country: EG (occurrence: EG)
  Receive Date: 20130307
  Receipt Date: 20170511
  Transmission Date: 20170830
  Serious: Yes (Death, Life-Threatening, Hospitalization, Other)
  Sender: FDA-Public Use
  Company Number: EG-BAXTER-2013BAX007874

PATIENT
  Age: 59 Year
  Sex: Female
  Weight: 64 kg

DRUGS (16)
  1. RITUXIMAB [Suspect]
     Active Substance: RITUXIMAB
     Indication: NON-HODGKIN^S LYMPHOMA
     Route: 042
     Dates: start: 20120718
  2. RITUXIMAB [Suspect]
     Active Substance: RITUXIMAB
     Dosage: LAST DOSE PRIOR TO SAE
     Route: 058
     Dates: start: 20121212
  3. PARACETAMOL [Concomitant]
     Active Substance: ACETAMINOPHEN
     Route: 065
     Dates: start: 20121126, end: 20121126
  4. ENDOXAN 1G [Suspect]
     Active Substance: CYCLOPHOSPHAMIDE
     Indication: NON-HODGKIN^S LYMPHOMA
     Route: 065
  5. FLUDARABINE PHOSPHATE. [Suspect]
     Active Substance: FLUDARABINE PHOSPHATE
     Indication: NON-HODGKIN^S LYMPHOMA
     Route: 065
  6. FUCICORT [Concomitant]
     Active Substance: BETAMETHASONE VALERATE\FUSIDIC ACID
     Indication: RASH
     Dosage: FOR SKIN RASH AROUND RITUXIMAB SC INJECTION SITE IN THE ABDOMEN
     Route: 061
     Dates: start: 20120819, end: 20120827
  7. RITUXIMAB [Suspect]
     Active Substance: RITUXIMAB
     Route: 058
     Dates: start: 20120815
  8. RITUXIMAB [Suspect]
     Active Substance: RITUXIMAB
     Route: 058
     Dates: start: 20121017
  9. PARACETAMOL [Concomitant]
     Active Substance: ACETAMINOPHEN
     Indication: PYREXIA
     Route: 065
     Dates: start: 20120718, end: 20120819
  10. PARACETAMOL [Concomitant]
     Active Substance: ACETAMINOPHEN
     Dosage: 2 TABLETS ONCE ON FEVER
     Route: 065
     Dates: start: 20121021, end: 20121021
  11. FUCICORT [Concomitant]
     Active Substance: BETAMETHASONE VALERATE\FUSIDIC ACID
     Route: 061
     Dates: start: 20120920
  12. ENDOXAN 1G [Suspect]
     Active Substance: CYCLOPHOSPHAMIDE
     Indication: PRODUCT USED FOR UNKNOWN INDICATION
     Route: 065
  13. RITUXIMAB [Suspect]
     Active Substance: RITUXIMAB
     Route: 058
     Dates: start: 20120919
  14. RITUXIMAB [Suspect]
     Active Substance: RITUXIMAB
     Route: 058
     Dates: start: 20121114
  15. NIFUROXAZIDE [Concomitant]
     Active Substance: NIFUROXAZIDE
     Indication: PRODUCT USED FOR UNKNOWN INDICATION
     Route: 065
     Dates: start: 20121101, end: 20121106
  16. NIFUROXAZIDE [Concomitant]
     Active Substance: NIFUROXAZIDE
     Indication: DIARRHOEA
     Route: 065
     Dates: start: 20121221

REACTIONS (5)
  - Sepsis [Fatal]
  - Anaemia [Recovered/Resolved with Sequelae]
  - Shock [Unknown]
  - Rectal haemorrhage [Unknown]
  - Platelet count decreased [Recovering/Resolving]

NARRATIVE: CASE EVENT DATE: 20130108
